FAERS Safety Report 6151963-8 (Version None)
Quarter: 2009Q2

REPORT INFORMATION
  Report Type: 
  Country: None (occurrence: None)
  Receive Date: 20090410
  Receipt Date: 20090406
  Transmission Date: 20091009
  Serious: Yes (Life-Threatening)
  Sender: FDA-Public Use
  Company Number: SK-CELGENEUS-THASK200800337

PATIENT
  Sex: Male

DRUGS (5)
  1. THALIDOMIDE [Suspect]
     Indication: MULTIPLE MYELOMA
     Route: 048
     Dates: start: 20080114
  2. THALIDOMIDE [Suspect]
     Route: 048
     Dates: start: 20080211
  3. ZOMETA [Concomitant]
     Indication: PROPHYLAXIS
     Route: 051
  4. CEFOTAXIME [Concomitant]
     Indication: PHARYNGITIS
     Route: 065
     Dates: start: 20080222, end: 20080225
  5. MEDIPYRIN [Concomitant]
     Indication: PHARYNGITIS
     Route: 048

REACTIONS (2)
  - HAEMATOMA [None]
  - PALATAL OEDEMA [None]
